FAERS Safety Report 12990886 (Version 2)
Quarter: 2017Q3

REPORT INFORMATION
  Report Type: Report from Study
  Country: None (occurrence: BR)
  Receive Date: 20161201
  Receipt Date: 20170822
  Transmission Date: 20171127
  Serious: Yes (Other)
  Sender: FDA-Public Use
  Company Number: BR-ABBVIE-16P-020-1795516-00

PATIENT
  Age: 58 Year
  Sex: Female
  Weight: 95 kg

DRUGS (3)
  1. VELIJA [Concomitant]
     Active Substance: DULOXETINE HYDROCHLORIDE
     Indication: DEPRESSION
     Dosage: 60 MG (IN THE MORNING)
     Dates: start: 2014
  2. HIGROTON [Concomitant]
     Active Substance: CHLORTHALIDONE
     Indication: BLOOD PRESSURE ABNORMAL
     Dates: start: 2001
  3. SYNTHROID [Suspect]
     Active Substance: LEVOTHYROXINE SODIUM
     Indication: HYPOTHYROIDISM
     Dosage: 75MCG
     Route: 048
     Dates: start: 2001

REACTIONS (4)
  - Weight increased [Not Recovered/Not Resolved]
  - Metabolic surgery [Recovered/Resolved]
  - Abdominal pain upper [Not Recovered/Not Resolved]
  - Abdominal wall wound [Not Recovered/Not Resolved]

NARRATIVE: CASE EVENT DATE: 2010
